FAERS Safety Report 13624884 (Version 1)
Quarter: 2017Q2

REPORT INFORMATION
  Report Type: Spontaneous
  Country: US (occurrence: US)
  Receive Date: 20170608
  Receipt Date: 20170608
  Transmission Date: 20170830
  Serious: Yes (Other)
  Sender: FDA-Public Use
  Company Number: US-B.I. PHARMACEUTICALS,INC./RIDGEFIELD-2017-BI-030947

PATIENT
  Age: 83 Year
  Sex: Female

DRUGS (13)
  1. LEVEMIR [Concomitant]
     Active Substance: INSULIN DETEMIR
     Indication: DIABETES MELLITUS
     Dosage: 12 UNIT ONCE DAILY;  FORMULATION: SUBCUTANEOUS;
     Route: 058
  2. DILTIAZEM. [Concomitant]
     Active Substance: DILTIAZEM
     Indication: ARRHYTHMIA
     Dosage: 1 TABLET DAILY;  FORM STRENGTH: 300MG; FORMULATION: TABLET
     Route: 048
  3. ALLEGRA [Concomitant]
     Active Substance: FEXOFENADINE HYDROCHLORIDE
     Indication: HYPERSENSITIVITY
     Dosage: 1 TABLET DAILY;  FORM STRENGTH: 180MG; FORMULATION: TABLET
     Route: 048
  4. OMEPRAZOLE. [Concomitant]
     Active Substance: OMEPRAZOLE
     Indication: HIATUS HERNIA
     Dosage: 1 CAPSULE DAILY;  FORM STRENGTH: 40MG; FORMULATION: CAPSULE
     Route: 048
  5. GUANFACINE. [Concomitant]
     Active Substance: GUANFACINE
     Indication: HYPERTENSION
     Dosage: 1 TABLET DAILY;  FORM STRENGTH: 1MG; FORMULATION: TABLET
     Route: 048
  6. SYNTHROID [Concomitant]
     Active Substance: LEVOTHYROXINE SODIUM
     Indication: HYPOTHYROIDISM
     Dosage: 1 TABLET DAILY;  FORM STRENGTH: 88 MCG; FORMULATION: TABLET
     Route: 048
  7. DILTIAZEM. [Concomitant]
     Active Substance: DILTIAZEM
     Indication: HYPERTENSION
  8. MONTELUKAST [Concomitant]
     Active Substance: MONTELUKAST SODIUM
     Indication: HYPERSENSITIVITY
     Dosage: 1 TABLET DAILY;  FORM STRENGTH: 10MG; FORMULATION: TABLET
     Route: 048
  9. POTASSIUM CHLORIDE. [Concomitant]
     Active Substance: POTASSIUM CHLORIDE
     Indication: PRODUCT USED FOR UNKNOWN INDICATION
     Dosage: 1 TABLET DAILY;  FORM STRENGTH: 20MEQ; FORMULATION: TABLET
     Route: 048
  10. OMEPRAZOLE. [Concomitant]
     Active Substance: OMEPRAZOLE
     Indication: GASTRITIS
  11. SUCRALFATE. [Concomitant]
     Active Substance: SUCRALFATE
     Indication: COLON CANCER
     Dosage: 1 TABLET QID;  FORM STRENGTH: 1 GRAM; FORMULATION: TABLET
     Route: 048
  12. LANTAPROST [Concomitant]
     Indication: GLAUCOMA
     Dosage: 1 DROP DAILY;
     Route: 061
  13. SPIRIVA [Suspect]
     Active Substance: TIOTROPIUM BROMIDE MONOHYDRATE
     Indication: CHRONIC OBSTRUCTIVE PULMONARY DISEASE
     Route: 055
     Dates: start: 2016

REACTIONS (5)
  - Vocal cord paralysis [Not Recovered/Not Resolved]
  - Sinus disorder [Not Recovered/Not Resolved]
  - Candida infection [Not Recovered/Not Resolved]
  - Sinusitis [Unknown]
  - Glaucoma [Not Recovered/Not Resolved]

NARRATIVE: CASE EVENT DATE: 201701
